FAERS Safety Report 15128610 (Version 3)
Quarter: 2018Q3

REPORT INFORMATION
  Report Type: Spontaneous
  Country: US (occurrence: US)
  Receive Date: 20180711
  Receipt Date: 20180911
  Transmission Date: 20181010
  Serious: No
  Sender: FDA-Public Use
  Company Number: US-BIOGEN-2018BI00605205

PATIENT
  Age: 54 Year
  Sex: Female

DRUGS (1)
  1. TYSABRI [Suspect]
     Active Substance: NATALIZUMAB
     Indication: MULTIPLE SCLEROSIS
     Route: 065
     Dates: start: 20180607

REACTIONS (13)
  - Nausea [Recovered/Resolved]
  - Cough [Unknown]
  - Vomiting [Recovered/Resolved]
  - Urticaria [Unknown]
  - Hypersensitivity [Unknown]
  - Drug specific antibody present [Unknown]
  - Feeling hot [Unknown]
  - Throat tightness [Unknown]
  - Dizziness [Unknown]
  - Influenza like illness [Recovered/Resolved with Sequelae]
  - Erythema [Unknown]
  - Diarrhoea [Recovered/Resolved]
  - Gait disturbance [Unknown]

NARRATIVE: CASE EVENT DATE: 20180705
